FAERS Safety Report 5917011-7 (Version None)
Quarter: 2008Q4

REPORT INFORMATION
  Report Type: 
  Country: None (occurrence: None)
  Receive Date: 20081009
  Receipt Date: 20080926
  Transmission Date: 20090506
  Serious: No
  Sender: FDA-Public Use
  Company Number: 20085385

PATIENT
  Sex: Male

DRUGS (1)
  1. LIORESAL [Suspect]
     Indication: MUSCLE SPASTICITY
     Dosage: 600 MCG, DAILY INTRATHECAL
     Route: 037

REACTIONS (11)
  - AGITATION [None]
  - CONDITION AGGRAVATED [None]
  - CONSTIPATION [None]
  - CRYING [None]
  - DEVICE RELATED INFECTION [None]
  - DISCOMFORT [None]
  - ILL-DEFINED DISORDER [None]
  - IRRITABILITY [None]
  - MUSCLE SPASTICITY [None]
  - PAIN [None]
  - UNDERDOSE [None]
